FAERS Safety Report 9282718 (Version 1)
Quarter: 2013Q2

REPORT INFORMATION
  Report Type: Spontaneous
  Country: US (occurrence: None)
  Receive Date: 20130509
  Receipt Date: 20130509
  Transmission Date: 20140414
  Serious: No
  Sender: FDA-Public Use
  Company Number: None

PATIENT
  Age: 53 Year
  Sex: Male
  Weight: 68.04 kg

DRUGS (4)
  1. TIZANIDINE [Suspect]
     Dosage: 1-3TIMES A DAY
     Dates: start: 20130418, end: 20130518
  2. BACLOFEN [Concomitant]
  3. NORCO [Concomitant]
  4. RESTORL [Concomitant]

REACTIONS (4)
  - Hallucination [None]
  - Pharyngeal oedema [None]
  - Dysphagia [None]
  - Abdominal distension [None]
